FAERS Safety Report 9982350 (Version 1)
Quarter: 2014Q1

REPORT INFORMATION
  Report Type: Report from Study
  Country: US (occurrence: US)
  Receive Date: 20140307
  Receipt Date: 20140307
  Transmission Date: 20141002
  Serious: No
  Sender: FDA-Public Use
  Company Number: US-ABBVIE-13P-163-1177299-00

PATIENT
  Age: 85 Year
  Sex: Female

DRUGS (13)
  1. HUMIRA [Suspect]
     Indication: RHEUMATOID ARTHRITIS
     Dates: start: 20131008
  2. SYNTHROID [Concomitant]
     Indication: PRODUCT USED FOR UNKNOWN INDICATION
     Dosage: 1X
  3. OMEPRAZOLE [Concomitant]
     Indication: PRODUCT USED FOR UNKNOWN INDICATION
     Dosage: 1 PILL BEFORE EACH MEAL
  4. LORAZEPAM [Concomitant]
     Indication: INSOMNIA
     Dosage: AT BEDTIME
  5. FOLIC ACID [Concomitant]
     Indication: PRODUCT USED FOR UNKNOWN INDICATION
  6. IRBESARTAN/HYDROCHLOROTHIAZIDE APOTEX [Concomitant]
     Indication: PRODUCT USED FOR UNKNOWN INDICATION
     Dosage: 300/12.5 MG
  7. HYDROXYCHLOROQUINE [Concomitant]
     Indication: PRODUCT USED FOR UNKNOWN INDICATION
     Dosage: UNKNOWN MG
  8. CELEBREX [Concomitant]
     Indication: PAIN
     Dosage: DAILY
     Dates: end: 20131105
  9. CELEBREX [Concomitant]
     Dates: start: 20131105
  10. METHOTREXATE [Concomitant]
     Indication: ARTHRITIS
     Dosage: SIX PILLS A WEEK
     Dates: end: 201311
  11. METHOTREXATE [Concomitant]
     Dosage: THREE PILLS A WEEK
     Dates: start: 201311
  12. PREDNISONE [Concomitant]
     Indication: PRODUCT USED FOR UNKNOWN INDICATION
     Dates: start: 2013
  13. PREDNISONE [Concomitant]
     Dates: end: 2013

REACTIONS (1)
  - Decreased appetite [Not Recovered/Not Resolved]
